FAERS Safety Report 8312605-6 (Version None)
Quarter: 2012Q2

REPORT INFORMATION
  Report Type: 
  Country: None (occurrence: None)
  Receive Date: 20120424
  Receipt Date: 20120409
  Transmission Date: 20120825
  Serious: Yes (Other)
  Sender: FDA-Public Use
  Company Number: FK201201068

PATIENT
  Age: 61 Year
  Sex: Male

DRUGS (1)
  1. ADENOSINE [Suspect]
     Indication: CORONARY ARTERIAL STENT INSERTION
     Dosage: 100 UG, INTRACORONARY
     Route: 022

REACTIONS (3)
  - CARDIAC VENTRICULAR DISORDER [None]
  - ATRIOVENTRICULAR BLOCK COMPLETE [None]
  - TORSADE DE POINTES [None]
